FAERS Safety Report 15599553 (Version 1)
Quarter: 2018Q4

REPORT INFORMATION
  Report Type: Spontaneous
  Country: DE (occurrence: DE)
  Receive Date: 20181108
  Receipt Date: 20181108
  Transmission Date: 20190205
  Serious: Yes (Congenital Anomaly, Other)
  Sender: FDA-Public Use
  Company Number: DE-MYLANLABS-2018M1084085

PATIENT
  Sex: Male
  Weight: 1.95 kg

DRUGS (3)
  1. DOXEPIN [Concomitant]
     Active Substance: DOXEPIN
     Indication: SLEEP DISORDER
     Dosage: 75 [MG/D ]
     Route: 064
     Dates: start: 20160922, end: 20161107
  2. FOLSAEURE [Concomitant]
     Active Substance: FOLIC ACID
     Indication: PROPHYLAXIS OF NEURAL TUBE DEFECT
     Dosage: UNK
     Route: 064
  3. RISPERIDONE. [Suspect]
     Active Substance: RISPERIDONE
     Indication: POST-TRAUMATIC STRESS DISORDER
     Dosage: 2 [MG/D ]
     Route: 064
     Dates: start: 20160922, end: 20170606

REACTIONS (3)
  - Foetal exposure during pregnancy [Recovered/Resolved]
  - Talipes [Recovering/Resolving]
  - Small for dates baby [Recovering/Resolving]
